FAERS Safety Report 4950793-X (Version None)
Quarter: 2006Q1

REPORT INFORMATION
  Report Type: 
  Country: None (occurrence: None)
  Receive Date: 20060322
  Receipt Date: 20060310
  Transmission Date: 20060701
  Serious: Yes (Hospitalization, Other)
  Sender: FDA-Public Use
  Company Number: JP-JNJFOC-20060303008

PATIENT
  Age: 10 Year
  Sex: Male

DRUGS (10)
  1. OXYBUTYNIN HYDROCHLORIDE [Suspect]
     Indication: NEUROGENIC BLADDER
     Route: 048
  2. BUP-4 [Concomitant]
     Indication: NEUROGENIC BLADDER
  3. CEFZON [Concomitant]
  4. MUCODYNE [Concomitant]
  5. PERIACTIN [Concomitant]
  6. PENMALIN [Concomitant]
  7. FLOMOX [Concomitant]
  8. COTRIM [Concomitant]
  9. COTRIM [Concomitant]
  10. PANVITAN [Concomitant]

REACTIONS (5)
  - ANAEMIA [None]
  - HAEMATURIA [None]
  - HAEMORRHAGIC DIATHESIS [None]
  - THROMBOCYTOPENIA [None]
  - URINARY TRACT INFECTION [None]
